FAERS Safety Report 17329429 (Version 4)
Quarter: 2020Q2

REPORT INFORMATION
  Report Type: Report from Study
  Country: US (occurrence: US)
  Receive Date: 20200127
  Receipt Date: 20200605
  Transmission Date: 20200713
  Serious: Yes (Life-Threatening, Hospitalization)
  Sender: FDA-Public Use
  Company Number: US-GILEAD-2020-0448249

PATIENT
  Age: 48 Year
  Sex: Male
  Weight: 77 kg

DRUGS (105)
  1. LIDOCAINE HCL AND EPINEPHRINE [EPINEPHRINE;LIDOCAINE HYDROCHLORIDE] [Concomitant]
     Dosage: 10,ML,DAILY
     Route: 050
     Dates: start: 20200102, end: 20200102
  2. PROCHLORPERAZINE EDISYLATE. [Concomitant]
     Active Substance: PROCHLORPERAZINE EDISYLATE
     Dosage: 5,MG,OTHER
     Route: 041
     Dates: start: 20200125, end: 20200125
  3. TOCILIZUMAB. [Concomitant]
     Active Substance: TOCILIZUMAB
     Dosage: 586,MG,OTHER
     Route: 041
     Dates: start: 20200115, end: 20200115
  4. CARBOXYMETHYLCELLULOSE [Concomitant]
     Active Substance: CARBOXYMETHYLCELLULOSE
     Dosage: 2,OTHER,AS NECESSARY
     Route: 050
     Dates: start: 20200118, end: 20200118
  5. POTASSIUM CHLORIDE. [Concomitant]
     Active Substance: POTASSIUM CHLORIDE
     Dosage: 20,OTHER,AS NECESSARY
     Route: 041
     Dates: start: 20200120, end: 20200131
  6. DEXTROSE;SODIUM CHLORIDE [Concomitant]
     Dosage: 150,OTHER,OTHER (D5-NS)
     Route: 041
     Dates: start: 20200125, end: 20200126
  7. MIDAZOLAM. [Concomitant]
     Active Substance: MIDAZOLAM
     Dosage: 4,MG,DAILY
     Route: 041
     Dates: start: 20200102, end: 20200102
  8. ACYCLOVIR [ACICLOVIR] [Concomitant]
     Active Substance: ACYCLOVIR
     Dosage: 710,MG,OTHER
     Route: 041
     Dates: start: 20200124, end: 20200125
  9. LEVETIRACETAM. [Concomitant]
     Active Substance: LEVETIRACETAM
     Dosage: 500,MG,DAILY
     Route: 041
     Dates: start: 20200125, end: 20200125
  10. ENOXAPARIN [Concomitant]
     Active Substance: ENOXAPARIN
     Dosage: 80,MG,EVERY 12 HOURS
     Route: 041
     Dates: start: 20200130, end: 20200309
  11. DIPHENHYDRAMINE. [Concomitant]
     Active Substance: DIPHENHYDRAMINE
     Dosage: 25,MG,DAILY
     Route: 058
     Dates: start: 20200115, end: 20200115
  12. ACETAMINOPHEN. [Concomitant]
     Active Substance: ACETAMINOPHEN
     Dosage: 1000,MG,DAILY
     Route: 041
     Dates: start: 20200114, end: 20200114
  13. ACETAMINOPHEN. [Concomitant]
     Active Substance: ACETAMINOPHEN
     Dosage: 325,MG,DAILY
     Route: 048
     Dates: start: 20200115, end: 20200115
  14. SODIUM CHLORIDE 0.9% [Concomitant]
     Active Substance: SODIUM CHLORIDE
     Dosage: 500,ML,OTHER, BOLUS
     Route: 041
     Dates: start: 20200120, end: 20200120
  15. SODIUM CHLORIDE 0.9% [Concomitant]
     Active Substance: SODIUM CHLORIDE
     Dosage: 1000,ML,OTHER, BOLUS
     Route: 041
     Dates: start: 20200121, end: 20200121
  16. SODIUM CHLORIDE 0.9% [Concomitant]
     Active Substance: SODIUM CHLORIDE
     Dosage: 1000,ML,OTHER, BOLUS
     Route: 041
     Dates: start: 20200124, end: 20200124
  17. SODIUM CHLORIDE 0.9% [Concomitant]
     Active Substance: SODIUM CHLORIDE
     Dosage: 10,OTHER,OTHER
     Route: 041
     Dates: start: 20200108, end: 20200108
  18. OXYGEN. [Concomitant]
     Active Substance: OXYGEN
     Dosage: 1-4,L/MIN,AS NECESSARY
     Dates: start: 20200115, end: 20200117
  19. LACTATED RINGERS SOLUTION [Concomitant]
     Active Substance: CALCIUM CHLORIDE\POTASSIUM CHLORIDE\SODIUM CHLORIDE\SODIUM LACTATE
     Dosage: 1000,ML,DAILY, BOLUS
     Route: 041
     Dates: start: 20200116, end: 20200116
  20. SCOPOLAMINE [HYOSCINE] [Concomitant]
     Active Substance: SCOPOLAMINE
     Dosage: 1,OTHER,OTHER
     Route: 062
     Dates: start: 20200122, end: 20200128
  21. OXYCODONE [Concomitant]
     Active Substance: OXYCODONE
     Dosage: 5,MG,OTHER
     Route: 048
     Dates: start: 20200123, end: 20200123
  22. DEXTROSE;SODIUM CHLORIDE [Concomitant]
     Dosage: 125,OTHER,OTHER (D5-NS)
     Route: 041
     Dates: start: 20200122, end: 20200122
  23. MESNA. [Suspect]
     Active Substance: MESNA
     Indication: BONE MARROW CONDITIONING REGIMEN
     Dosage: 125
     Route: 042
     Dates: start: 20200103, end: 20200105
  24. PALONOSETRON. [Concomitant]
     Active Substance: PALONOSETRON HYDROCHLORIDE
     Dosage: 0.25,MG,DAILY
     Route: 041
     Dates: start: 20200103, end: 20200103
  25. LEVOFLOXACIN. [Concomitant]
     Active Substance: LEVOFLOXACIN
     Dosage: 500,MG,DAILY
     Route: 048
     Dates: start: 20200107, end: 20200112
  26. ACETAMINOPHEN. [Concomitant]
     Active Substance: ACETAMINOPHEN
     Dosage: 650,MG,OTHER
     Route: 048
     Dates: start: 20200108, end: 20200108
  27. ACETAMINOPHEN. [Concomitant]
     Active Substance: ACETAMINOPHEN
     Dosage: 650,MG,TWICE DAILY
     Route: 048
     Dates: start: 20200114, end: 20200115
  28. ACETAMINOPHEN. [Concomitant]
     Active Substance: ACETAMINOPHEN
     Dosage: 650,MG,AS NECESSARY
     Route: 048
     Dates: start: 20200121, end: 20200129
  29. ACETAMINOPHEN. [Concomitant]
     Active Substance: ACETAMINOPHEN
     Dosage: 650,MG,DAILY
     Route: 048
     Dates: start: 20200127, end: 20200127
  30. SODIUM CHLORIDE 0.9% [Concomitant]
     Active Substance: SODIUM CHLORIDE
     Dosage: 1000,ML,AS NECESSARY, BOLUS
     Route: 041
     Dates: start: 20200115, end: 20200115
  31. SODIUM CHLORIDE 0.9% [Concomitant]
     Active Substance: SODIUM CHLORIDE
     Dosage: 500,ML,DAILY, BOLUS
     Route: 041
     Dates: start: 20200127, end: 20200127
  32. TOCILIZUMAB. [Concomitant]
     Active Substance: TOCILIZUMAB
     Dosage: 606,MG,OTHER
     Route: 041
     Dates: start: 20200117, end: 20200117
  33. DEXAMETHASONE. [Concomitant]
     Active Substance: DEXAMETHASONE
     Dosage: 10,MG,OTHER
     Route: 041
     Dates: start: 20200115, end: 20200115
  34. CEFTAZIDIME. [Concomitant]
     Active Substance: CEFTAZIDIME
     Dosage: 2,G,THREE TIMES DAILY
     Route: 041
     Dates: start: 20200116, end: 20200119
  35. FUROSEMIDE. [Concomitant]
     Active Substance: FUROSEMIDE
     Dosage: 20,MG,OTHER
     Route: 041
     Dates: start: 20200117, end: 20200117
  36. DEXTROMETHORPHAN-GUAIFENESIN [Concomitant]
     Active Substance: DEXTROMETHORPHAN\GUAIFENESIN
     Dosage: 10,ML,OTHER
     Route: 048
     Dates: start: 20200118, end: 20200121
  37. OXYCODONE [Concomitant]
     Active Substance: OXYCODONE
     Dosage: 2.5,MG,OTHER
     Route: 048
     Dates: start: 20200122, end: 20200122
  38. CYCLOPHOSPHAMIDE. [Suspect]
     Active Substance: CYCLOPHOSPHAMIDE
     Indication: BONE MARROW CONDITIONING REGIMEN
     Dosage: 500
     Route: 042
     Dates: start: 20200103, end: 20200105
  39. FLUDARABINE [Suspect]
     Active Substance: FLUDARABINE PHOSPHATE
     Indication: BONE MARROW CONDITIONING REGIMEN
     Dosage: 30
     Route: 042
     Dates: start: 20200103, end: 20200105
  40. ACYCLOVIR [ACICLOVIR] [Concomitant]
     Active Substance: ACYCLOVIR
     Dosage: 400,MG,THREE TIMES DAILY
     Route: 048
     Dates: start: 20200107
  41. LEVOFLOXACIN. [Concomitant]
     Active Substance: LEVOFLOXACIN
     Dosage: 750,MG,DAILY
     Route: 048
     Dates: start: 20200119, end: 20200122
  42. LEVOFLOXACIN. [Concomitant]
     Active Substance: LEVOFLOXACIN
     Dosage: 750,MG,OTHER, PREMIX
     Route: 041
     Dates: start: 20200121, end: 20200122
  43. ALLOPURINOL. [Concomitant]
     Active Substance: ALLOPURINOL
     Dosage: 300,MG,DAILY
     Route: 048
     Dates: start: 20200108, end: 20200121
  44. DIPHENHYDRAMINE. [Concomitant]
     Active Substance: DIPHENHYDRAMINE
     Dosage: 25,MG,DAILY
     Route: 048
     Dates: start: 20200127, end: 20200127
  45. ACETAMINOPHEN. [Concomitant]
     Active Substance: ACETAMINOPHEN
     Dosage: 650,MG,AS NECESSARY
     Route: 054
     Dates: start: 20200127, end: 20200127
  46. PROCHLORPERAZINE. [Concomitant]
     Active Substance: PROCHLORPERAZINE
     Dosage: 10,MG,AS NECESSARY
     Route: 048
     Dates: start: 20200114, end: 20200120
  47. SODIUM CHLORIDE 0.9% [Concomitant]
     Active Substance: SODIUM CHLORIDE
     Dosage: 500,ML,OTHER, BOLUS
     Route: 041
     Dates: start: 20200114, end: 20200114
  48. TOCILIZUMAB. [Concomitant]
     Active Substance: TOCILIZUMAB
     Dosage: 606,MG,OTHER
     Route: 041
     Dates: start: 20200116, end: 20200116
  49. METRONIDAZOLE. [Concomitant]
     Active Substance: METRONIDAZOLE
     Dosage: 500,MG,OTHER
     Route: 041
     Dates: start: 20200116, end: 20200120
  50. LORAZEPAM. [Concomitant]
     Active Substance: LORAZEPAM
     Dosage: 0.5-1,MG,AS NECESSARY
     Route: 041
     Dates: start: 20200116, end: 20200128
  51. POTASSIUM;SODIUM PHOSPHATE [Concomitant]
     Dosage: 1,OTHER,FOUR TIMES DAILY
     Route: 048
     Dates: start: 20200117, end: 20200118
  52. FAMOTIDINE. [Concomitant]
     Active Substance: FAMOTIDINE
     Dosage: 20,MG,TWICE DAILY
     Route: 048
     Dates: start: 20200120, end: 20200128
  53. DEXTROSE;SODIUM CHLORIDE [Concomitant]
     Dosage: 75,OTHER,OTHER (D5-NS)
     Route: 041
     Dates: start: 20200126, end: 20200126
  54. CAFFEINE. [Concomitant]
     Active Substance: CAFFEINE
     Dosage: 200,MG,AS NECESSARY
     Route: 048
     Dates: start: 20200123, end: 20200123
  55. AXICABTAGENE CILOLEUCEL [Suspect]
     Active Substance: AXICABTAGENE CILOLEUCEL
     Indication: NON-HODGKIN^S LYMPHOMA REFRACTORY
     Dosage: 1 DOSAGE FORM
     Route: 042
     Dates: start: 20200108, end: 20200108
  56. MIDAZOLAM. [Concomitant]
     Active Substance: MIDAZOLAM
     Dosage: 1-2,OTHER,OTHER
     Route: 041
     Dates: start: 20200124, end: 20200125
  57. FENTANYL. [Concomitant]
     Active Substance: FENTANYL
     Dosage: 150,UG,DAILY
     Route: 041
     Dates: start: 20200102, end: 20200102
  58. LEVETIRACETAM. [Concomitant]
     Active Substance: LEVETIRACETAM
     Dosage: 1000,MG,OTHER
     Route: 041
     Dates: start: 20200124, end: 20200124
  59. LEVETIRACETAM. [Concomitant]
     Active Substance: LEVETIRACETAM
     Dosage: 2000,MG,TWICE DAILY
     Route: 041
     Dates: start: 20200125, end: 20200128
  60. ENOXAPARIN [Concomitant]
     Active Substance: ENOXAPARIN
     Dosage: 40,MG,DAILY
     Route: 058
     Dates: start: 20200108, end: 20200126
  61. DIPHENHYDRAMINE. [Concomitant]
     Active Substance: DIPHENHYDRAMINE
     Dosage: 25,MG,OTHER
     Route: 048
     Dates: start: 20200108, end: 20200108
  62. PROCHLORPERAZINE EDISYLATE. [Concomitant]
     Active Substance: PROCHLORPERAZINE EDISYLATE
     Dosage: 10,MG,AS NECESSARY
     Route: 041
     Dates: start: 20200114, end: 20200121
  63. SODIUM CHLORIDE 0.9% [Concomitant]
     Active Substance: SODIUM CHLORIDE
     Dosage: 500,ML,OTHER, BOLUS
     Route: 041
     Dates: start: 20200123, end: 20200123
  64. SODIUM CHLORIDE 0.9% [Concomitant]
     Active Substance: SODIUM CHLORIDE
     Dosage: 1000,ML,DAILY, BOLUS
     Route: 041
     Dates: start: 20200203, end: 20200204
  65. CALCIUM GLUCONATE. [Concomitant]
     Active Substance: CALCIUM GLUCONATE
     Dosage: 2,G,DAILY
     Route: 041
     Dates: start: 20200115, end: 20200115
  66. DEXAMETHASONE. [Concomitant]
     Active Substance: DEXAMETHASONE
     Dosage: 10,MG,DAILY
     Route: 041
     Dates: start: 20200124, end: 20200124
  67. LOPERAMIDE [Concomitant]
     Active Substance: LOPERAMIDE
     Dosage: 4,MG,AS NECESSARY
     Route: 048
     Dates: start: 20200116, end: 20200205
  68. MAGNESIUM SULFATE. [Concomitant]
     Active Substance: MAGNESIUM SULFATE
     Dosage: 1,OTHER,OTHER,, IN WATER
     Route: 041
     Dates: start: 20200129, end: 20200202
  69. SIMETHICONE (DIMETHICONE) [Concomitant]
     Active Substance: DIMETHICONE
     Dosage: 80,MG,OTHER
     Route: 048
     Dates: start: 20200118, end: 20200123
  70. FAMOTIDINE. [Concomitant]
     Active Substance: FAMOTIDINE
     Dosage: 20,MG,TWICE DAILY
     Route: 048
     Dates: start: 20200128, end: 20200202
  71. MECLIZINE [Concomitant]
     Active Substance: MECLIZINE HYDROCHLORIDE
     Dosage: 25,MG,THREE TIMES DAILY
     Route: 048
     Dates: start: 20200121, end: 20200123
  72. MECLIZINE [Concomitant]
     Active Substance: MECLIZINE HYDROCHLORIDE
     Dosage: 25,MG,AS NECESSARY
     Route: 048
     Dates: start: 20200125, end: 20200128
  73. METOCLOPRAMIDE HCL [Concomitant]
     Active Substance: METOCLOPRAMIDE HYDROCHLORIDE
     Dosage: 10,MG,OTHER
     Route: 048
     Dates: start: 20200123, end: 20200123
  74. LIDOCAINE. [Concomitant]
     Active Substance: LIDOCAINE
     Dosage: 5,ML,DAILY
     Route: 050
     Dates: start: 20200102, end: 20200102
  75. PEGFILGRASTIM [Concomitant]
     Active Substance: PEGFILGRASTIM
     Dosage: 6,MG,DAILY
     Route: 058
     Dates: start: 20200105, end: 20200105
  76. ACYCLOVIR [ACICLOVIR] [Concomitant]
     Active Substance: ACYCLOVIR
     Dosage: 200,MG,DAILY
     Route: 041
     Dates: start: 20200121, end: 20200121
  77. SULFAMETHOXAZOLE AND TRIMETHOPRIM [Concomitant]
     Active Substance: SULFAMETHOXAZOLE\TRIMETHOPRIM
     Dosage: 80,MG,DAILY
     Route: 048
     Dates: start: 20200107
  78. LORATADINE. [Concomitant]
     Active Substance: LORATADINE
     Dosage: 10,MG,DAILY
     Route: 048
     Dates: start: 20200108, end: 20200113
  79. CHLORHEXIDINE [Concomitant]
     Active Substance: CHLORHEXIDINE
     Dosage: 4% EXTERNAL LIQUID. 1,OTHER,AS NECESSARY
     Route: 061
     Dates: start: 20200108, end: 20200207
  80. SODIUM CHLORIDE 0.9% [Concomitant]
     Active Substance: SODIUM CHLORIDE
     Dosage: 250,ML,AS NECESSARY, BOLUS
     Route: 041
     Dates: start: 20200124, end: 20200125
  81. CALCIUM GLUCONATE. [Concomitant]
     Active Substance: CALCIUM GLUCONATE
     Dosage: 2,G,DAILY
     Route: 041
     Dates: start: 20200123, end: 20200124
  82. CALCIUM GLUCONATE. [Concomitant]
     Active Substance: CALCIUM GLUCONATE
     Dosage: 2,G,DAILY
     Route: 041
     Dates: start: 20200130, end: 20200130
  83. LACTATED RINGERS SOLUTION [Concomitant]
     Active Substance: CALCIUM CHLORIDE\POTASSIUM CHLORIDE\SODIUM CHLORIDE\SODIUM LACTATE
     Dosage: 100,OTHER,AS NECESSARY
     Dates: start: 20200115, end: 20200118
  84. LORAZEPAM. [Concomitant]
     Active Substance: LORAZEPAM
     Dosage: 4,MG,DAILY
     Route: 041
     Dates: start: 20200124, end: 20200124
  85. LORAZEPAM. [Concomitant]
     Active Substance: LORAZEPAM
     Dosage: 2,MG,AS NECESSARY
     Route: 041
     Dates: start: 20200124, end: 20200201
  86. ONDANSETRON [Concomitant]
     Active Substance: ONDANSETRON
     Dosage: 8,MG,AS NECESSARY
     Route: 041
     Dates: start: 20200120, end: 20200122
  87. FAMOTIDINE. [Concomitant]
     Active Substance: FAMOTIDINE
     Dosage: 20,MG,TWICE DAILY
     Route: 041
     Dates: start: 20200124, end: 20200128
  88. LEVETIRACETAM. [Concomitant]
     Active Substance: LEVETIRACETAM
     Dosage: 750,MG,EVERY 12 HOURS
     Route: 048
     Dates: start: 20200107, end: 20200123
  89. LEVETIRACETAM. [Concomitant]
     Active Substance: LEVETIRACETAM
     Dosage: 2000,MG,TWICE DAILY
     Route: 048
     Dates: start: 20200128, end: 20200201
  90. MAGNESIUM OXIDE. [Concomitant]
     Active Substance: MAGNESIUM OXIDE
     Dosage: 400-800,MG,AS NECESSARY
     Route: 048
     Dates: start: 20200108, end: 20200121
  91. MAGNESIUM OXIDE. [Concomitant]
     Active Substance: MAGNESIUM OXIDE
     Dosage: 400,MG,OTHER
     Route: 048
     Dates: start: 20200123, end: 20200123
  92. DEXAMETHASONE. [Concomitant]
     Active Substance: DEXAMETHASONE
     Dosage: 10,MG,OTHER
     Route: 041
     Dates: start: 20200117, end: 20200117
  93. MAGNESIUM SULFATE. [Concomitant]
     Active Substance: MAGNESIUM SULFATE
     Dosage: 2,G,AS NECESSARY
     Route: 041
     Dates: start: 20200117, end: 20200208
  94. GUAIFENESIN. [Concomitant]
     Active Substance: GUAIFENESIN
     Dosage: 400,MG,OTHER
     Route: 048
     Dates: start: 20200117, end: 20200118
  95. FUROSEMIDE. [Concomitant]
     Active Substance: FUROSEMIDE
     Dosage: 20,MG,OTHER
     Route: 041
     Dates: start: 20200118, end: 20200118
  96. LEVETIRACETAM. [Concomitant]
     Active Substance: LEVETIRACETAM
     Dosage: 1500,MG,AS NECESSARY
     Route: 041
     Dates: start: 20200124, end: 20200125
  97. ACETAMINOPHEN. [Concomitant]
     Active Substance: ACETAMINOPHEN
     Dosage: 1000,MG,OTHER
     Route: 041
     Dates: start: 20200115, end: 20200117
  98. SODIUM CHLORIDE 0.9% [Concomitant]
     Active Substance: SODIUM CHLORIDE
     Dosage: 1000,ML,DAILY, BOLUS
     Route: 041
     Dates: start: 20200127, end: 20200127
  99. SODIUM CHLORIDE 0.9% [Concomitant]
     Active Substance: SODIUM CHLORIDE
     Dosage: 500,OTHER,TWICE DAILY
     Route: 041
     Dates: start: 20200103, end: 20200105
  100. DEXAMETHASONE. [Concomitant]
     Active Substance: DEXAMETHASONE
     Dosage: 10,MG,OTHER
     Route: 041
     Dates: start: 20200116, end: 20200116
  101. LACTATED RINGERS SOLUTION [Concomitant]
     Active Substance: CALCIUM CHLORIDE\POTASSIUM CHLORIDE\SODIUM CHLORIDE\SODIUM LACTATE
     Dosage: 1000,ML,OTHER, BOLUS
     Route: 041
     Dates: start: 20200131, end: 20200131
  102. METRONIDAZOLE. [Concomitant]
     Active Substance: METRONIDAZOLE
     Dosage: 500,MG,OTHER
     Route: 048
     Dates: start: 20200120, end: 20200121
  103. LORAZEPAM. [Concomitant]
     Active Substance: LORAZEPAM
     Dosage: 0.5,MG,DAILY
     Route: 048
     Dates: start: 20200126, end: 20200126
  104. LORAZEPAM. [Concomitant]
     Active Substance: LORAZEPAM
     Dosage: 1,MG,AS NECESSARY
     Route: 048
     Dates: start: 20200207
  105. METHYL SALICYLATE [Concomitant]
     Active Substance: METHYL SALICYLATE
     Dosage: 1,OTHER,AS NECESSARY
     Route: 061
     Dates: start: 20200123, end: 20200123

REACTIONS (3)
  - Cardiac arrest [Recovered/Resolved]
  - Seizure [Recovered/Resolved]
  - Seizure [Recovered/Resolved]

NARRATIVE: CASE EVENT DATE: 20200124
